FAERS Safety Report 11905765 (Version 1)
Quarter: 2016Q1

REPORT INFORMATION
  Report Type: Spontaneous
  Country: US (occurrence: None)
  Receive Date: 20160107
  Receipt Date: 20160107
  Transmission Date: 20160526
  Serious: Yes (Death)
  Sender: FDA-Public Use
  Company Number: US-ALSI-201600001

PATIENT
  Age: 82 Year
  Sex: Male

DRUGS (2)
  1. OXYGEN. [Suspect]
     Active Substance: OXYGEN
  2. OXYGEN USP OXYGEN [Suspect]
     Active Substance: OXYGEN
     Indication: PRODUCT USED FOR UNKNOWN INDICATION
     Route: 055

REACTIONS (2)
  - Accident [None]
  - Intentional product misuse [None]
